FAERS Safety Report 24848301 (Version 2)
Quarter: 2025Q1

REPORT INFORMATION
  Report Type: Spontaneous
  Country: BR (occurrence: BR)
  Receive Date: 20250116
  Receipt Date: 20250125
  Transmission Date: 20250409
  Serious: Yes (Death, Other)
  Sender: CELLTRION
  Company Number: BR-CELLTRION INC.-2023BR013725

PATIENT

DRUGS (5)
  1. INFLIXIMAB [Suspect]
     Active Substance: INFLIXIMAB
     Indication: Crohn^s disease
     Route: 042
     Dates: start: 20221103
  2. INFLIXIMAB [Suspect]
     Active Substance: INFLIXIMAB
     Route: 042
     Dates: start: 20230705
  3. IMIPRAMINE [Concomitant]
     Active Substance: IMIPRAMINE
     Indication: Depression
     Route: 048
  4. LOSARTAN [Concomitant]
     Active Substance: LOSARTAN
     Indication: Hypertension
     Route: 048
  5. SERTRALINE [Concomitant]
     Active Substance: SERTRALINE HYDROCHLORIDE
     Route: 048

REACTIONS (4)
  - Death [Fatal]
  - Illness [Fatal]
  - Endotracheal intubation [Fatal]
  - Intentional dose omission [Recovered/Resolved]

NARRATIVE: CASE EVENT DATE: 20240713
